FAERS Safety Report 9208092 (Version 1)
Quarter: 2013Q2

REPORT INFORMATION
  Report Type: Spontaneous
  Country: US (occurrence: US)
  Receive Date: 20130403
  Receipt Date: 20130403
  Transmission Date: 20140414
  Serious: No
  Sender: FDA-Public Use
  Company Number: US-ASTRAZENECA-2013SE20087

PATIENT
  Age: 25 Year
  Sex: Female

DRUGS (8)
  1. SEROQUEL [Suspect]
     Indication: SCHIZOPHRENIA
     Route: 048
     Dates: start: 2008
  2. SEROQUEL [Suspect]
     Indication: BIPOLAR I DISORDER
     Route: 048
     Dates: start: 2008
  3. SEROQUEL [Suspect]
     Indication: SCHIZOPHRENIA
     Dosage: SLOWLY INCREASED TO 600MG AT NIGHT
     Route: 048
     Dates: end: 2012
  4. SEROQUEL [Suspect]
     Indication: BIPOLAR I DISORDER
     Dosage: SLOWLY INCREASED TO 600MG AT NIGHT
     Route: 048
     Dates: end: 2012
  5. SEROQUEL [Suspect]
     Indication: SCHIZOPHRENIA
     Route: 048
     Dates: start: 2008
  6. SEROQUEL [Suspect]
     Indication: BIPOLAR I DISORDER
     Route: 048
     Dates: start: 2008
  7. SEROQUEL [Suspect]
     Indication: SCHIZOPHRENIA
     Dosage: SLOWLY INCREASED TO 600MG AT NIGHT
     Route: 048
     Dates: end: 2012
  8. SEROQUEL [Suspect]
     Indication: BIPOLAR I DISORDER
     Dosage: SLOWLY INCREASED TO 600MG AT NIGHT
     Route: 048
     Dates: end: 2012

REACTIONS (7)
  - Hyperhidrosis [Unknown]
  - Skin exfoliation [Unknown]
  - Hypertension [Unknown]
  - Insomnia [Unknown]
  - Local swelling [Unknown]
  - Intentional drug misuse [Unknown]
  - Drug dose omission [Unknown]
